FAERS Safety Report 16683107 (Version 1)
Quarter: 2019Q3

REPORT INFORMATION
  Report Type: Report from Study
  Country: ES (occurrence: ES)
  Receive Date: 20190808
  Receipt Date: 20190808
  Transmission Date: 20191004
  Serious: Yes (Other)
  Sender: FDA-Public Use
  Company Number: ES-JNJFOC-20190709268

PATIENT
  Sex: Female

DRUGS (2)
  1. CAELYX [Suspect]
     Active Substance: DOXORUBICIN HYDROCHLORIDE
     Indication: BREAST CANCER METASTATIC
     Dosage: FOR 60MIN
     Route: 042
  2. GEMCITABINE. [Suspect]
     Active Substance: GEMCITABINE
     Indication: BREAST CANCER METASTATIC
     Dosage: DAY 1, ON A THREE-WEEK SCHEDULE, FOR 30 MIN
     Route: 042

REACTIONS (11)
  - Thrombocytopenia [Unknown]
  - Fatigue [Unknown]
  - Anaemia [Unknown]
  - Palmar-plantar erythrodysaesthesia syndrome [Unknown]
  - Nausea [Unknown]
  - Skin toxicity [Unknown]
  - Vomiting [Unknown]
  - Hypersensitivity [Unknown]
  - Febrile neutropenia [Unknown]
  - Neutropenia [Unknown]
  - Mucosal inflammation [Unknown]
